FAERS Safety Report 21299699 (Version 1)
Quarter: 2022Q3

REPORT INFORMATION
  Report Type: Spontaneous
  Country: US (occurrence: None)
  Receive Date: 20220906
  Receipt Date: 20220906
  Transmission Date: 20221026
  Serious: Yes (Disabling)
  Sender: FDA-Public Use
  Company Number: None

PATIENT
  Age: 52 Year
  Sex: Female
  Weight: 57 kg

DRUGS (1)
  1. NIVOLUMAB [Suspect]
     Active Substance: NIVOLUMAB
     Indication: Ovarian cancer metastatic
     Dates: start: 20170801, end: 20211101

REACTIONS (3)
  - Dyspnoea [None]
  - Bronchiectasis [None]
  - Obliterative bronchiolitis [None]

NARRATIVE: CASE EVENT DATE: 20220818
